FAERS Safety Report 17587230 (Version 1)
Quarter: 2020Q1

REPORT INFORMATION
  Report Type: Spontaneous
  Country: FR (occurrence: FR)
  Receive Date: 20200326
  Receipt Date: 20200326
  Transmission Date: 20200409
  Serious: Yes (Hospitalization, Other)
  Sender: FDA-Public Use
  Company Number: FR-MYLANLABS-2020M1032100

PATIENT
  Age: 81 Year
  Sex: Female
  Weight: 51 kg

DRUGS (1)
  1. FONDAPARINUX [Suspect]
     Active Substance: FONDAPARINUX
     Indication: PROPHYLAXIS
     Dosage: 1 DOSAGE FORM
     Route: 030

REACTIONS (3)
  - Incorrect route of product administration [Unknown]
  - Anaemia [Recovering/Resolving]
  - Haematoma [Recovered/Resolved]

NARRATIVE: CASE EVENT DATE: 20200211
